FAERS Safety Report 21369091 (Version 1)
Quarter: 2022Q3

REPORT INFORMATION
  Report Type: Spontaneous
  Country: US (occurrence: US)
  Receive Date: 20220923
  Receipt Date: 20220923
  Transmission Date: 20221027
  Serious: No
  Sender: FDA-Public Use
  Company Number: US-BIOGEN-2022BI01091376

PATIENT
  Sex: Male

DRUGS (1)
  1. TECFIDERA [Suspect]
     Active Substance: DIMETHYL FUMARATE
     Indication: Product used for unknown indication
     Route: 050
     Dates: end: 20220902

REACTIONS (4)
  - Muscle twitching [Recovered/Resolved]
  - Gait disturbance [Recovered/Resolved]
  - Abdominal discomfort [Recovered/Resolved]
  - Flushing [Unknown]
